FAERS Safety Report 18657227 (Version 1)
Quarter: 2020Q4

REPORT INFORMATION
  Report Type: Spontaneous
  Country: GB (occurrence: GB)
  Receive Date: 20201223
  Receipt Date: 20201223
  Transmission Date: 20210114
  Serious: Yes (Other)
  Sender: FDA-Public Use
  Company Number: GB-GILEAD-2020-0510316

PATIENT
  Age: 86 Year
  Sex: Male
  Weight: 79 kg

DRUGS (7)
  1. FINASTERIDE. [Concomitant]
     Active Substance: FINASTERIDE
     Dosage: 1 DOSAGE FORM, QD
     Dates: start: 20200206
  2. PRAVASTATIN. [Concomitant]
     Active Substance: PRAVASTATIN
     Dosage: 1 DOSAGE FORM, QD
     Dates: start: 20191023
  3. ACETYLSALICYLIC ACID [Concomitant]
     Active Substance: ASPIRIN
     Dosage: 1 DOSAGE FORM, QD
     Dates: start: 20200306
  4. ALFUZOSIN [Concomitant]
     Active Substance: ALFUZOSIN
     Dosage: 1 DOSAGE FORM, QD
     Dates: start: 20200106
  5. RANEXA [Suspect]
     Active Substance: RANOLAZINE
     Indication: CHEST PAIN
     Dosage: 750 MG, QD
     Route: 065
     Dates: start: 20200901
  6. GLYCERYL TRINITRATE COX [Concomitant]
     Indication: CHEST PAIN
     Dosage: 1 DOSAGE FORM, PRN
     Route: 060
     Dates: start: 20200902, end: 20200930
  7. OMEPRAZOLE. [Concomitant]
     Active Substance: OMEPRAZOLE
     Dosage: 1 DOSAGE FORM, QD
     Dates: start: 20201009

REACTIONS (2)
  - Urticaria [Recovered/Resolved]
  - Swelling face [Recovered/Resolved]

NARRATIVE: CASE EVENT DATE: 20201026
